FAERS Safety Report 19940682 (Version 1)
Quarter: 2021Q4

REPORT INFORMATION
  Report Type: Spontaneous
  Country: US (occurrence: US)
  Receive Date: 20211011
  Receipt Date: 20211011
  Transmission Date: 20220303
  Serious: Yes (Other)
  Sender: FDA-Public Use
  Company Number: US-GW PHARMA-202110USGW04814

PATIENT

DRUGS (1)
  1. EPIDIOLEX [Suspect]
     Active Substance: CANNABIDIOL
     Indication: Lennox-Gastaut syndrome
     Dosage: 30.41 MG/KG, 1000 MILLIGRAM, BID
     Route: 048
     Dates: start: 20191121, end: 20210916

REACTIONS (4)
  - Dyspnoea [Recovered/Resolved]
  - Blood glucose increased [Recovered/Resolved]
  - Pyrexia [Recovered/Resolved]
  - Intentional overdose [Unknown]

NARRATIVE: CASE EVENT DATE: 20210701
